FAERS Safety Report 12155213 (Version 1)
Quarter: 2016Q1

REPORT INFORMATION
  Report Type: Spontaneous
  Country: IT (occurrence: IT)
  Receive Date: 20160307
  Receipt Date: 20160307
  Transmission Date: 20160526
  Serious: Yes (Other)
  Sender: FDA-Public Use
  Company Number: IT-SA-2016SA040184

PATIENT
  Age: 85 Year
  Sex: Male

DRUGS (1)
  1. LASIX [Suspect]
     Active Substance: FUROSEMIDE
     Route: 042
     Dates: start: 20141124, end: 20141124

REACTIONS (2)
  - Presyncope [Recovering/Resolving]
  - Head injury [Recovering/Resolving]

NARRATIVE: CASE EVENT DATE: 20141124
